FAERS Safety Report 24646823 (Version 1)
Quarter: 2024Q4

REPORT INFORMATION
  Report Type: Spontaneous
  Country: US (occurrence: None)
  Receive Date: 20241120
  Receipt Date: 20241120
  Transmission Date: 20250115
  Serious: Yes (Death)
  Sender: Public
  Company Number: None

PATIENT
  Age: 62 Year
  Sex: Female

DRUGS (1)
  1. COLLAGENASE SANTYL [Suspect]
     Active Substance: COLLAGENASE CLOSTRIDIUM HISTOLYTICUM
     Dosage: OTHER FREQUENCY : APPLY ONCE A DAY TO BURN ON LEFT BREAST ;?OTHER ROUTE : THEN COVER WITH NON ADHERE
     Route: 050
     Dates: start: 20240830

REACTIONS (1)
  - Death [None]
